FAERS Safety Report 17632423 (Version 1)
Quarter: 2020Q2

REPORT INFORMATION
  Report Type: Spontaneous
  Country: FR (occurrence: FR)
  Receive Date: 20200406
  Receipt Date: 20200406
  Transmission Date: 20200713
  Serious: Yes (Death, Other)
  Sender: FDA-Public Use
  Company Number: FR-ACCORD-178217

PATIENT
  Age: 76 Year
  Sex: Female
  Weight: 82.4 kg

DRUGS (15)
  1. CALCIUM GLUCONATE/MAGNESIUM CARBONATE/POTASSIUM CHLORIDE/SODIUM CHLORIDE [Concomitant]
     Active Substance: CALCIUM GLUCONATE\MAGNESIUM CARBONATE\POTASSIUM CHLORIDE\SODIUM CHLORIDE
     Route: 048
     Dates: start: 20151029, end: 20191105
  2. MACROGOL 3350 [Concomitant]
     Active Substance: POLYETHYLENE GLYCOL 3350
     Route: 048
     Dates: start: 20191029, end: 20191105
  3. SODIUM BICARBONATE. [Concomitant]
     Active Substance: SODIUM BICARBONATE
     Route: 054
     Dates: start: 20191029, end: 20191105
  4. PAROXETINE. [Concomitant]
     Active Substance: PAROXETINE
     Route: 048
     Dates: start: 20191029, end: 20191105
  5. INSULIN [Concomitant]
     Active Substance: INSULIN NOS
     Dosage: ACCORDING TO BLOOD SUGAR
     Route: 058
     Dates: start: 20191029, end: 20191105
  6. ACEBUTOLOL [Concomitant]
     Active Substance: ACEBUTOLOL
     Route: 048
     Dates: start: 20191029, end: 20191105
  7. CEFTAZIDIME/CEFTAZIDIME PENTAHYDRATE [Suspect]
     Active Substance: CEFTAZIDIME
     Indication: SEPSIS
     Route: 042
     Dates: start: 20191029, end: 20191105
  8. FLAGYL [Concomitant]
     Active Substance: METRONIDAZOLE\METRONIDAZOLE HYDROCHLORIDE
     Route: 048
     Dates: start: 20191024, end: 20191029
  9. MORPHINE [Concomitant]
     Active Substance: MORPHINE
     Route: 042
     Dates: start: 20191029, end: 20191105
  10. ENOXAPARIN [Concomitant]
     Active Substance: ENOXAPARIN
     Route: 058
     Dates: start: 20191029, end: 20191105
  11. SODIUM PHOSPHATE [Concomitant]
     Active Substance: SODIUM PHOSPHATE
     Route: 054
     Dates: start: 20191029, end: 20191105
  12. DAPTOMYCIN. [Suspect]
     Active Substance: DAPTOMYCIN
     Indication: SEPSIS
     Route: 041
     Dates: start: 20191029, end: 20191105
  13. POTASSIUM [Concomitant]
     Active Substance: POTASSIUM
     Route: 054
     Dates: start: 20191029, end: 20191105
  14. RILMENIDINE/RILMENIDINE PHOSPHATE [Concomitant]
     Active Substance: RILMENIDINE
     Route: 048
     Dates: start: 20191029, end: 20191105
  15. SODIUM PHOSPHATE [Concomitant]
     Active Substance: SODIUM PHOSPHATE
     Route: 054
     Dates: start: 20191029, end: 20191105

REACTIONS (1)
  - Cholestasis [Not Recovered/Not Resolved]

NARRATIVE: CASE EVENT DATE: 20191104
